FAERS Safety Report 5886322-6 (Version None)
Quarter: 2008Q3

REPORT INFORMATION
  Report Type: 
  Country: None (occurrence: None)
  Receive Date: 20080917
  Receipt Date: 20080909
  Transmission Date: 20090109
  Serious: Yes (Other)
  Sender: FDA-Public Use
  Company Number: B0437360A

PATIENT
  Age: 30 Year
  Sex: Male

DRUGS (21)
  1. EPIVIR [Suspect]
     Indication: HIV INFECTION
     Route: 048
     Dates: start: 19981026, end: 20071213
  2. RETROVIR [Suspect]
     Indication: HIV INFECTION
     Route: 048
     Dates: start: 19901201, end: 20040527
  3. ZERIT [Suspect]
     Indication: HIV INFECTION
     Route: 048
     Dates: start: 20001013, end: 20030113
  4. CRIXIVAN [Suspect]
     Indication: HIV INFECTION
     Route: 048
     Dates: start: 19970301, end: 20001101
  5. VIRACEPT [Suspect]
     Indication: HIV INFECTION
     Route: 048
     Dates: start: 20001119, end: 20030113
  6. STOCRIN [Suspect]
     Indication: HIV INFECTION
     Route: 048
     Dates: start: 20030114, end: 20040527
  7. NORVIR [Suspect]
     Indication: HIV INFECTION
     Dosage: 100MG PER DAY
     Route: 048
     Dates: start: 20040528, end: 20071213
  8. REYATAZ [Suspect]
     Indication: HIV INFECTION
     Dosage: 300MG PER DAY
     Route: 048
     Dates: start: 20040528, end: 20071213
  9. ZIAGEN [Suspect]
     Indication: HIV INFECTION
     Dosage: 600MG PER DAY
     Route: 048
     Dates: start: 20040528, end: 20071213
  10. VIDEX [Concomitant]
     Indication: HIV INFECTION
     Dosage: 250MG PER DAY
     Route: 048
     Dates: start: 19940417, end: 19981026
  11. NORVIR [Concomitant]
     Route: 048
     Dates: start: 20040528
  12. REYATAZ [Concomitant]
     Route: 048
     Dates: start: 20040528
  13. VIREAD [Concomitant]
     Indication: HIV INFECTION
     Dosage: 600MG PER DAY
     Route: 048
     Dates: start: 20040528, end: 20050419
  14. ZIAGEN [Concomitant]
     Dosage: 300MG TWICE PER DAY
     Route: 048
     Dates: start: 20040528, end: 20050613
  15. EPZICOM [Concomitant]
     Indication: HIV INFECTION
     Route: 048
     Dates: start: 20050614
  16. CLARITHROMYCIN [Concomitant]
     Indication: ANTIBIOTIC PROPHYLAXIS
     Dosage: 200MG PER DAY
     Route: 048
     Dates: start: 20051014
  17. GLYBURIDE [Concomitant]
  18. HIRNAMIN [Concomitant]
     Indication: DEPRESSION
     Dosage: 20MG PER DAY
     Route: 048
     Dates: start: 20050720
  19. SERENACE [Concomitant]
     Indication: DEPRESSION
     Route: 048
     Dates: start: 20050720
  20. AKINETON [Concomitant]
     Indication: DEPRESSION
     Dosage: 2MG PER DAY
     Route: 048
     Dates: start: 20050720
  21. NOVORAPID [Concomitant]
     Indication: DIABETES MELLITUS
     Route: 058
     Dates: start: 20060502, end: 20071213

REACTIONS (13)
  - ALANINE AMINOTRANSFERASE INCREASED [None]
  - ASPARTATE AMINOTRANSFERASE INCREASED [None]
  - BLOOD ALKALINE PHOSPHATASE INCREASED [None]
  - BLOOD CHOLESTEROL INCREASED [None]
  - BLOOD CREATININE INCREASED [None]
  - BLOOD LACTATE DEHYDROGENASE INCREASED [None]
  - BLOOD TRIGLYCERIDES INCREASED [None]
  - BLOOD UREA INCREASED [None]
  - GAMMA-GLUTAMYLTRANSFERASE INCREASED [None]
  - HEPATIC FUNCTION ABNORMAL [None]
  - RENAL IMPAIRMENT [None]
  - SCHIZOPHRENIA [None]
  - WHITE BLOOD CELL COUNT DECREASED [None]
